FAERS Safety Report 5533204-5 (Version None)
Quarter: 2007Q4

REPORT INFORMATION
  Report Type: 
  Country: None (occurrence: None)
  Receive Date: 20071129
  Receipt Date: 20071129
  Transmission Date: 20080405
  Serious: Yes (Life-Threatening, Disabling, Other)
  Sender: FDA-Public Use
  Company Number: None

PATIENT
  Age: 33 Year
  Sex: Male
  Weight: 95.2554 kg

DRUGS (1)
  1. CHANTIX [Suspect]
     Indication: SMOKING CESSATION THERAPY
     Dosage: 1MG  2XDAILY  PO
     Route: 048
     Dates: start: 20061111, end: 20071127

REACTIONS (4)
  - ANGER [None]
  - BLOOD PRESSURE INCREASED [None]
  - EMOTIONAL DISORDER [None]
  - HEART RATE INCREASED [None]
